FAERS Safety Report 25745451 (Version 1)
Quarter: 2025Q3

REPORT INFORMATION
  Report Type: Spontaneous
  Country: GB (occurrence: GB)
  Receive Date: 20250901
  Receipt Date: 20250901
  Transmission Date: 20251020
  Serious: Yes (Other)
  Sender: MDD OPERATIONS
  Company Number: GB-SUP-SUP202508-003249

PATIENT
  Age: 13 Year
  Sex: Male

DRUGS (3)
  1. TOPIRAMATE [Suspect]
     Active Substance: TOPIRAMATE
     Indication: Frontal lobe epilepsy
  2. OXCARBAZEPINE [Suspect]
     Active Substance: OXCARBAZEPINE
     Indication: Frontal lobe epilepsy
  3. CENOBAMATE [Suspect]
     Active Substance: CENOBAMATE
     Indication: Frontal lobe epilepsy

REACTIONS (1)
  - Hyponatraemia [Unknown]
